FAERS Safety Report 6600050-0 (Version None)
Quarter: 2010Q1

REPORT INFORMATION
  Report Type: 
  Country: None (occurrence: None)
  Receive Date: 20100224
  Receipt Date: 20100216
  Transmission Date: 20100710
  Serious: Yes (Hospitalization)
  Sender: FDA-Public Use
  Company Number: FR-AMGEN-QUU392882

PATIENT
  Sex: Female

DRUGS (2)
  1. NEULASTA [Suspect]
     Indication: CHEMOTHERAPY
     Route: 065
     Dates: start: 20100206
  2. UNSPECIFIED ANTINEOPLASTIC AGENT [Concomitant]

REACTIONS (2)
  - FEBRILE BONE MARROW APLASIA [None]
  - RENAL FAILURE [None]
